FAERS Safety Report 14168921 (Version 1)
Quarter: 2017Q4

REPORT INFORMATION
  Report Type: Spontaneous
  Country: US (occurrence: US)
  Receive Date: 20171108
  Receipt Date: 20171108
  Transmission Date: 20180321
  Serious: Yes (Other)
  Sender: FDA-Public Use
  Company Number: US-PFIZER INC-2017475675

PATIENT
  Age: 53 Year
  Sex: Female
  Weight: 56.7 kg

DRUGS (12)
  1. LYRICA [Suspect]
     Active Substance: PREGABALIN
     Indication: COMPLEX REGIONAL PAIN SYNDROME
     Dosage: 100 MG, 3X/DAY
     Dates: start: 2013
  2. LYRICA [Suspect]
     Active Substance: PREGABALIN
     Dosage: 50 MG, 4X/DAY
     Dates: start: 2014
  3. NORCO [Concomitant]
     Active Substance: ACETAMINOPHEN\HYDROCODONE BITARTRATE
     Indication: PAIN
     Dosage: 10MG CAN TAKE IT UP TO 4 TIMES A DAY
     Dates: start: 20131223
  4. LYRICA [Suspect]
     Active Substance: PREGABALIN
     Dosage: 100 MG, 2X/DAY
     Dates: start: 2013, end: 2014
  5. CYCLOBENZAPRINE. [Concomitant]
     Active Substance: CYCLOBENZAPRINE
     Indication: MUSCLE SPASMS
     Dosage: 10MG, CAN TAKE IT UP TO 3 TIMES A DAY
     Dates: start: 201610
  6. POTASSIUM [Concomitant]
     Active Substance: POTASSIUM
     Indication: MUSCLE SPASMS
     Dosage: UNK
  7. EQUATE ASPIRIN [Concomitant]
     Active Substance: ASPIRIN
     Indication: ARTHRITIS
  8. LYRICA [Suspect]
     Active Substance: PREGABALIN
     Dosage: 50 MG, 4X/DAY
  9. EQUATE ASPIRIN [Concomitant]
     Active Substance: ASPIRIN
     Indication: SWELLING
     Dosage: 325MG, SHE DON^T TAKE NO MORE THAN 4 A DAY
     Dates: start: 201308
  10. MELATONIN [Concomitant]
     Active Substance: MELATONIN
     Indication: SLEEP DISORDER
     Dosage: UNK
  11. LYRICA [Suspect]
     Active Substance: PREGABALIN
     Dosage: 75 MG, 4X/DAY
     Dates: start: 201708
  12. LYRICA [Suspect]
     Active Substance: PREGABALIN
     Dosage: 25 MG, 4X/DAY
     Dates: start: 201601

REACTIONS (5)
  - Drug intolerance [Unknown]
  - Drug dependence [Unknown]
  - Bedridden [Unknown]
  - Sedation [Unknown]
  - Drug ineffective for unapproved indication [Unknown]

NARRATIVE: CASE EVENT DATE: 2013
